FAERS Safety Report 21597006 (Version 1)
Quarter: 2022Q4

REPORT INFORMATION
  Report Type: Spontaneous
  Country: US (occurrence: None)
  Receive Date: 20221114
  Receipt Date: 20221114
  Transmission Date: 20230112
  Serious: Yes (Life-Threatening, Hospitalization, Disabling, Other)
  Sender: FDA-Public Use
  Company Number: None

PATIENT
  Age: 35 Year
  Sex: Female
  Weight: 108 kg

DRUGS (3)
  1. ART NATURALS HAND SANITIZER [Suspect]
     Active Substance: ALCOHOL
     Indication: COVID-19
     Dates: start: 20200401, end: 20220404
  2. ATRA [Concomitant]
  3. ARSENIC TRIOXIDE [Concomitant]
     Active Substance: ARSENIC TRIOXIDE

REACTIONS (3)
  - Acute promyelocytic leukaemia [None]
  - Recalled product administered [None]
  - Chemical poisoning [None]

NARRATIVE: CASE EVENT DATE: 20220401
